FAERS Safety Report 7573164-9 (Version None)
Quarter: 2011Q2

REPORT INFORMATION
  Report Type: 
  Country: None (occurrence: None)
  Receive Date: 20110627
  Receipt Date: 20110617
  Transmission Date: 20111010
  Serious: Yes (Disabling)
  Sender: FDA-Public Use
  Company Number: US-JNJFOC-20110608560

PATIENT
  Sex: Male
  Weight: 72.58 kg

DRUGS (3)
  1. INHALERS UNSPECIFIED [Concomitant]
     Route: 065
  2. AN UNKNOWN MEDICATION [Concomitant]
     Route: 065
  3. RISPERDAL [Suspect]
     Indication: SCHIZOPHRENIA
     Route: 048
     Dates: start: 20000101, end: 20100101

REACTIONS (2)
  - DISABILITY [None]
  - HYPERSOMNIA [None]
